FAERS Safety Report 7175859 (Version 4)
Quarter: 2013Q1

REPORT INFORMATION
  Report Type: Spontaneous
  Country: US (occurrence: US)
  Receive Date: 20091113
  Receipt Date: 20130318
  Transmission Date: 20140127
  Serious: Yes (Hospitalization)
  Sender: FDA-Public Use
  Company Number: US-BIOGENIDEC-2009BI036317

PATIENT
  Age: 73 None
  Sex: Female

DRUGS (1)
  1. AVONEX [Suspect]
     Indication: MULTIPLE SCLEROSIS
     Route: 030
     Dates: start: 20030722

REACTIONS (10)
  - Intervertebral disc degeneration [Recovered/Resolved]
  - Lumbar spinal stenosis [Unknown]
  - Cervical radiculopathy [Recovered/Resolved]
  - Intervertebral disc protrusion [Recovered/Resolved]
  - Back pain [Recovered/Resolved]
  - Nerve compression [Recovered/Resolved]
  - Fall [Recovered/Resolved]
  - Procedural hypertension [Not Recovered/Not Resolved]
  - Memory impairment [Not Recovered/Not Resolved]
  - Speech disorder [Recovered/Resolved]
